FAERS Safety Report 23052465 (Version 7)
Quarter: 2024Q2

REPORT INFORMATION
  Report Type: Report from Study
  Country: US (occurrence: US)
  Receive Date: 20231011
  Receipt Date: 20240627
  Transmission Date: 20240716
  Serious: Yes (Other)
  Sender: FDA-Public Use
  Company Number: US-ACADIA PHARMACEUTICALS INC.-ACA-2023-TRF-004205

PATIENT
  Age: 3 Year
  Sex: Male

DRUGS (7)
  1. DAYBUE [Suspect]
     Active Substance: TROFINETIDE
     Indication: Rett syndrome
     Dosage: 30 MILLILITER, BID
     Route: 048
     Dates: start: 202307
  2. DAYBUE [Suspect]
     Active Substance: TROFINETIDE
     Dosage: 30 MILLILITER, BID
     Dates: start: 20230701
  3. CYPROHEPTADINE [Concomitant]
     Active Substance: CYPROHEPTADINE
  4. FELBAMATE [Concomitant]
     Active Substance: FELBAMATE
     Dosage: 400 MG
     Dates: start: 20240119
  5. FELBAMATE [Concomitant]
     Active Substance: FELBAMATE
     Dosage: 400 MG/5ML
     Dates: start: 20240304
  6. RISPERIDONE [Concomitant]
     Active Substance: RISPERIDONE
     Dosage: 0.3 ML
     Dates: start: 20240304
  7. ONFI [Concomitant]
     Active Substance: CLOBAZAM
     Dosage: 20MG (8ML)
     Dates: start: 20240304

REACTIONS (9)
  - Seizure [Not Recovered/Not Resolved]
  - Faeces soft [Recovering/Resolving]
  - Faeces soft [Not Recovered/Not Resolved]
  - Faeces soft [Not Recovered/Not Resolved]
  - Product dose omission issue [Recovered/Resolved]
  - Diarrhoea [Not Recovered/Not Resolved]
  - Diarrhoea [Not Recovered/Not Resolved]
  - Diarrhoea [Recovering/Resolving]
  - Nasopharyngitis [Recovered/Resolved]

NARRATIVE: CASE EVENT DATE: 20230701
